FAERS Safety Report 8441649 (Version 9)
Quarter: 2012Q4

REPORT INFORMATION
  Report Type: 
  Country: GB (occurrence: GB)
  Receive Date: 20120305
  Receipt Date: 20121030
  Transmission Date: 20130627
  Serious: Yes (Life-Threatening, Hospitalization, Disabling, Other)
  Sender: FDA-Public Use
  Company Number: PHFR2012GB001385

PATIENT
  Sex: Male

DRUGS (4)
  1. CLOZARIL [Suspect]
     Indication: SCHIZOPHRENIA
     Dosage: 200 mg daily
     Route: 048
     Dates: start: 2007
  2. CLOZARIL [Suspect]
     Dosage: UNK UKN, UNK
     Dates: start: 20090104, end: 20121004
  3. CLONAZEPAM [Concomitant]
     Indication: ANXIETY
     Dosage: 0.75 mg, daily
     Route: 048
     Dates: start: 2007
  4. ATENOLOL [Concomitant]
     Indication: TACHYCARDIA
     Dosage: 50 mg, UNK
     Route: 048
     Dates: start: 2007

REACTIONS (5)
  - Mitral valve incompetence [Recovered/Resolved]
  - Cardiac murmur [Recovering/Resolving]
  - Chordae tendinae rupture [Recovering/Resolving]
  - Influenza like illness [Recovered/Resolved]
  - Cardiomyopathy [Not Recovered/Not Resolved]
